FAERS Safety Report 15325831 (Version 1)
Quarter: 2018Q3

REPORT INFORMATION
  Report Type: Spontaneous
  Country: US (occurrence: US)
  Receive Date: 20180823
  Receipt Date: 20180823
  Transmission Date: 20181010
  Serious: Yes (Other)
  Sender: FDA-Public Use
  Company Number: None

PATIENT
  Sex: Female
  Weight: 53.55 kg

DRUGS (12)
  1. IBRANCE [Suspect]
     Active Substance: PALBOCICLIB
     Indication: BREAST CANCER
     Route: 048
     Dates: start: 20171113
  2. LETROZOLE. [Concomitant]
     Active Substance: LETROZOLE
  3. OXYCODONE/APAP [Concomitant]
     Active Substance: ACETAMINOPHEN\OXYCODONE HYDROCHLORIDE
  4. ASPIRIN. [Concomitant]
     Active Substance: ASPIRIN
  5. VITAMIN D2 [Concomitant]
     Active Substance: ERGOCALCIFEROL
  6. TYLENOL [Concomitant]
     Active Substance: ACETAMINOPHEN
  7. EX?LAX REGULAR STRENGTH STIMULANT LAXATIVE [Concomitant]
     Active Substance: SENNOSIDES
  8. VITAMIN D3 [Concomitant]
     Active Substance: CHOLECALCIFEROL
  9. IBUPROFEN. [Concomitant]
     Active Substance: IBUPROFEN
  10. METFORMIN [Concomitant]
     Active Substance: METFORMIN HYDROCHLORIDE
  11. LISINOPRIL. [Concomitant]
     Active Substance: LISINOPRIL
  12. COLACE [Concomitant]
     Active Substance: DOCUSATE SODIUM

REACTIONS (3)
  - Confusional state [None]
  - Alopecia [None]
  - Disturbance in attention [None]

NARRATIVE: CASE EVENT DATE: 20180822
